FAERS Safety Report 6163869 (Version 2)
Quarter: 2019Q1

REPORT INFORMATION
  Report Type: Spontaneous
  Country: FR (occurrence: FR)
  Receive Date: 20061108
  Receipt Date: 20190131
  Transmission Date: 20190418
  Serious: Yes (Hospitalization, Other)
  Sender: FDA-Public Use
  Company Number: FR-GILEAD-2006-0010555

PATIENT
  Age: 56 Year
  Sex: Male

DRUGS (9)
  1. MOPRAL [Concomitant]
     Active Substance: OMEPRAZOLE
  2. CACIT D3 [Concomitant]
     Active Substance: CALCIUM\CHOLECALCIFEROL
  3. CLAMOXYL (AMOXICILLIN) [Suspect]
     Active Substance: AMOXICILLIN
     Indication: PRODUCT USED FOR UNKNOWN INDICATION
     Route: 048
     Dates: start: 20060929, end: 20061001
  4. CORTANCYL [Concomitant]
     Active Substance: PREDNISONE
  5. TAREG [Suspect]
     Active Substance: VALSARTAN
     Indication: PRODUCT USED FOR UNKNOWN INDICATION
     Route: 048
     Dates: end: 20061005
  6. ZEFFIX [Concomitant]
     Active Substance: LAMIVUDINE
  7. HEPSERA [Suspect]
     Active Substance: ADEFOVIR DIPIVOXIL
     Indication: HEPATITIS B REACTIVATION
     Route: 048
     Dates: start: 20060929, end: 20061006
  8. HEPSERA [Suspect]
     Active Substance: ADEFOVIR DIPIVOXIL
     Dosage: UNK
     Route: 048
     Dates: start: 20061011
  9. CARDENSIEL [Suspect]
     Active Substance: BISOPROLOL FUMARATE
     Indication: PRODUCT USED FOR UNKNOWN INDICATION
     Dosage: UNK
     Route: 048
     Dates: end: 20061005

REACTIONS (3)
  - Toxic skin eruption [Recovered/Resolved]
  - Prurigo [Recovered/Resolved]
  - Rash morbilliform [Recovered/Resolved]

NARRATIVE: CASE EVENT DATE: 20061003
